FAERS Safety Report 25887356 (Version 1)
Quarter: 2025Q4

REPORT INFORMATION
  Report Type: Spontaneous
  Country: EU (occurrence: EU)
  Receive Date: 20251006
  Receipt Date: 20251006
  Transmission Date: 20260118
  Serious: Yes (Hospitalization)
  Sender: JOHNSON AND JOHNSON
  Company Number: EU-AMGEN-CZESP2025190217

PATIENT
  Age: 57 Year
  Sex: Female

DRUGS (10)
  1. INFLIXIMAB [Suspect]
     Active Substance: INFLIXIMAB
     Indication: Pityriasis rubra pilaris
     Dosage: UNK
     Route: 041
  2. ADALIMUMAB [Suspect]
     Active Substance: ADALIMUMAB
     Indication: Pityriasis rubra pilaris
     Dosage: UNK
     Route: 065
  3. ACITRETIN [Concomitant]
     Active Substance: ACITRETIN
     Indication: Dermatitis exfoliative generalised
     Dosage: 25 MILLIGRAM, QD (FOR 4 MONTHS)
  4. ACITRETIN [Concomitant]
     Active Substance: ACITRETIN
     Indication: Skin exfoliation
  5. METHOTREXATE [Concomitant]
     Active Substance: METHOTREXATE
     Indication: Dermatitis exfoliative generalised
     Dosage: 10 MILLIGRAM, QWK (FOR 6 MONTHS)
  6. METHOTREXATE [Concomitant]
     Active Substance: METHOTREXATE
     Indication: Skin exfoliation
  7. AZATHIOPRINE [Concomitant]
     Active Substance: AZATHIOPRINE
     Indication: Dermatitis exfoliative generalised
     Dosage: 100 MILLIGRAM, QD (FOR 4 MONTHS)
  8. AZATHIOPRINE [Concomitant]
     Active Substance: AZATHIOPRINE
     Indication: Skin exfoliation
  9. CYCLOSPORINE [Concomitant]
     Active Substance: CYCLOSPORINE
     Indication: Pityriasis rubra pilaris
     Dosage: 150 MILLIGRAM, BID
  10. RISANKIZUMAB [Concomitant]
     Active Substance: RISANKIZUMAB
     Indication: Pityriasis rubra pilaris
     Dosage: UNK

REACTIONS (7)
  - Pityriasis rubra pilaris [Recovering/Resolving]
  - Dermatopathic lymphadenopathy [Unknown]
  - Pruritus [Recovered/Resolved]
  - Quality of life decreased [Recovering/Resolving]
  - Negative thoughts [Unknown]
  - Off label use [Unknown]
  - Drug ineffective for unapproved indication [Unknown]
